FAERS Safety Report 8017180-1 (Version None)
Quarter: 2012Q1

REPORT INFORMATION
  Report Type: 
  Country: None (occurrence: None)
  Receive Date: 20120102
  Receipt Date: 20111222
  Transmission Date: 20120608
  Serious: Yes (Hospitalization, Other)
  Sender: FDA-Public Use
  Company Number: JP-ROCHE-1010567

PATIENT
  Age: 47 Year
  Sex: Male
  Weight: 64 kg

DRUGS (45)
  1. MYCOPHENOLATE MOFETIL (CELLCEPT) [Suspect]
     Indication: PROPHYLAXIS AGAINST TRANSPLANT REJECTION
     Route: 048
     Dates: start: 20051017, end: 20051017
  2. MYCOPHENOLATE MOFETIL (CELLCEPT) [Suspect]
     Dates: start: 20051020, end: 20051022
  3. MYCOPHENOLATE MOFETIL (CELLCEPT) [Suspect]
     Dates: start: 20051023, end: 20051024
  4. MYCOPHENOLATE MOFETIL (CELLCEPT) [Suspect]
     Dates: start: 20051111, end: 20051111
  5. MYCOPHENOLATE MOFETIL (CELLCEPT) [Suspect]
     Dates: start: 20051117, end: 20051120
  6. SPIRONOLACTONE [Concomitant]
     Dates: start: 20051021, end: 20051104
  7. PRAVASTATIN SODIUM [Concomitant]
     Dates: start: 20051026
  8. MYCOPHENOLATE MOFETIL (CELLCEPT) [Suspect]
     Dates: start: 20051025, end: 20051028
  9. MYCOPHENOLATE MOFETIL (CELLCEPT) [Suspect]
     Dates: start: 20051230, end: 20060125
  10. METHYLPEDNISOLONE SODIUM SUCCINATE [Suspect]
     Dates: start: 20051015, end: 20051024
  11. FERROUS CITRATE [Concomitant]
     Route: 048
     Dates: start: 20070411, end: 20070514
  12. MYCOPHENOLATE MOFETIL (CELLCEPT) [Suspect]
     Dates: start: 20051029, end: 20051031
  13. MYCOPHENOLATE MOFETIL (CELLCEPT) [Suspect]
     Dates: start: 20051101, end: 20051102
  14. MYCOPHENOLATE MOFETIL (CELLCEPT) [Suspect]
     Dates: start: 20051112, end: 20051112
  15. MYCOPHENOLATE MOFETIL (CELLCEPT) [Suspect]
     Dates: start: 20051113, end: 20051113
  16. MYCOPHENOLATE MOFETIL (CELLCEPT) [Suspect]
     Dates: start: 20051116, end: 20051116
  17. MYCOPHENOLATE MOFETIL (CELLCEPT) [Suspect]
     Dates: start: 20060216, end: 20060216
  18. MYCOPHENOLATE MOFETIL (CELLCEPT) [Suspect]
     Dates: start: 20060421
  19. VALGANCICLOVIR HCL [Suspect]
     Dates: start: 20060228, end: 20060810
  20. SULFAMETHOXAZOLE AND TRIMETHOPRIM [Concomitant]
     Route: 048
     Dates: start: 20051024
  21. MYCOPHENOLATE MOFETIL (CELLCEPT) [Suspect]
     Dates: start: 20051019, end: 20051019
  22. MYCOPHENOLATE MOFETIL (CELLCEPT) [Suspect]
     Dates: start: 20051227, end: 20051229
  23. MYCOPHENOLATE MOFETIL (CELLCEPT) [Suspect]
     Dates: start: 20060217, end: 20060218
  24. MYCOPHENOLATE MOFETIL (CELLCEPT) [Suspect]
     Dates: start: 20060219, end: 20060227
  25. CYCLOSPORINE [Suspect]
     Indication: PROPHYLAXIS AGAINST TRANSPLANT REJECTION
     Route: 048
     Dates: start: 20051021, end: 20070411
  26. TACROLIMUS [Suspect]
     Indication: PROPHYLAXIS AGAINST TRANSPLANT REJECTION
     Route: 048
     Dates: start: 20070411
  27. MILRILA [Concomitant]
     Route: 042
     Dates: end: 20051024
  28. IMMUNE GLOBULIN INTRAVENOUS (HUMAN) [Concomitant]
     Route: 042
     Dates: end: 20051018
  29. MYCOPHENOLATE MOFETIL (CELLCEPT) [Suspect]
     Dates: start: 20051114, end: 20051115
  30. MYCOPHENOLATE MOFETIL (CELLCEPT) [Suspect]
     Dates: start: 20060228, end: 20060420
  31. METHYLPEDNISOLONE SODIUM SUCCINATE [Suspect]
     Indication: PROPHYLAXIS AGAINST TRANSPLANT REJECTION
     Route: 042
     Dates: start: 20051014, end: 20051014
  32. PREDNISOLONE [Suspect]
     Indication: PROPHYLAXIS AGAINST TRANSPLANT REJECTION
     Route: 048
     Dates: start: 20051025, end: 20081005
  33. VENOGLOBULIN [Concomitant]
     Route: 042
     Dates: start: 20071023, end: 20071025
  34. VALGANCICLOVIR HCL [Suspect]
     Indication: PROPHYLAXIS
     Route: 048
     Dates: start: 20051129, end: 20060125
  35. MYCOPHENOLATE MOFETIL (CELLCEPT) [Suspect]
     Dates: start: 20051018, end: 20051018
  36. MYCOPHENOLATE MOFETIL (CELLCEPT) [Suspect]
     Dates: start: 20051121, end: 20051130
  37. MYCOPHENOLATE MOFETIL (CELLCEPT) [Suspect]
     Dates: start: 20051201, end: 20051226
  38. SANDIMMUNE [Concomitant]
     Indication: PROPHYLAXIS AGAINST TRANSPLANT REJECTION
     Dates: start: 20051016, end: 20051024
  39. LASIX [Concomitant]
     Dates: start: 20051021
  40. DIFLUCAN [Concomitant]
     Route: 048
     Dates: start: 20051021, end: 20061018
  41. ENALAPRIL MALEATE [Concomitant]
     Route: 048
     Dates: start: 20051024
  42. ASPIRIN [Concomitant]
     Route: 048
     Dates: start: 20051031
  43. MYCOPHENOLATE MOFETIL (CELLCEPT) [Suspect]
     Dates: start: 20051103, end: 20051110
  44. LASIX [Concomitant]
     Route: 042
     Dates: end: 20051020
  45. NORVASC [Concomitant]
     Route: 048
     Dates: start: 20051109

REACTIONS (6)
  - WHITE BLOOD CELL COUNT DECREASED [None]
  - HALLUCINATION [None]
  - HALLUCINATION, AUDITORY [None]
  - CYTOMEGALOVIRUS TEST POSITIVE [None]
  - BLOOD IMMUNOGLOBULIN G DECREASED [None]
  - UPPER LIMB FRACTURE [None]
